FAERS Safety Report 10678242 (Version 1)
Quarter: 2014Q4

REPORT INFORMATION
  Report Type: Spontaneous
  Country: US (occurrence: None)
  Receive Date: 20141223
  Receipt Date: 20141223
  Transmission Date: 20150529
  Serious: Yes (Hospitalization)
  Sender: FDA-Public Use
  Company Number: CIO14086360

PATIENT

DRUGS (1)
  1. ZZZQUIL NIGHTTIME SLEEP-AID [Suspect]
     Active Substance: DIPHENHYDRAMINE HYDROCHLORIDE
     Dosage: TOOK TWO WHOLE BOTTLES, 1 ONLY, ORAL
     Route: 048

REACTIONS (4)
  - Mental status changes [None]
  - Incorrect dose administered [None]
  - Dissociative disorder [None]
  - Intentional overdose [None]
